FAERS Safety Report 9790542 (Version 1)
Quarter: 2013Q4

REPORT INFORMATION
  Report Type: Spontaneous
  Country: JP (occurrence: JP)
  Receive Date: 20131231
  Receipt Date: 20131231
  Transmission Date: 20140711
  Serious: Yes (Other)
  Sender: FDA-Public Use
  Company Number: JP-PFIZER INC-2013370961

PATIENT
  Age: 8 Decade
  Sex: Male

DRUGS (2)
  1. NORVASC [Suspect]
     Dosage: UNK
     Route: 048
     Dates: start: 2010
  2. RENIVACE [Concomitant]

REACTIONS (1)
  - Musculoskeletal stiffness [Unknown]
